FAERS Safety Report 9782849 (Version 1)
Quarter: 2013Q4

REPORT INFORMATION
  Report Type: Spontaneous
  Country: US (occurrence: US)
  Receive Date: 20131226
  Receipt Date: 20131226
  Transmission Date: 20140711
  Serious: No
  Sender: FDA-Public Use
  Company Number: US-ABBVIE-13P-163-1148801-00

PATIENT
  Sex: Male

DRUGS (7)
  1. LUPRON DEPOT [Suspect]
     Indication: PROSTATE CANCER
     Route: 030
     Dates: start: 20130107
  2. RADIATION TREATMENTS [Concomitant]
     Indication: PROSTATE CANCER
     Dates: start: 201301, end: 201303
  3. CADUET [Concomitant]
     Indication: HYPERTENSION
  4. CADUET [Concomitant]
     Indication: BLOOD CHOLESTEROL INCREASED
  5. PROTONIX [Concomitant]
     Indication: GASTROOESOPHAGEAL REFLUX DISEASE
  6. CELEBREX [Concomitant]
     Indication: ARTHRITIS
  7. CELEBREX [Concomitant]
     Indication: BACK PAIN

REACTIONS (8)
  - Sinusitis [Recovered/Resolved]
  - Sinusitis [Recovered/Resolved]
  - Cough [Not Recovered/Not Resolved]
  - Back pain [Not Recovered/Not Resolved]
  - Arthralgia [Not Recovered/Not Resolved]
  - Arthralgia [Not Recovered/Not Resolved]
  - Arthralgia [Not Recovered/Not Resolved]
  - Fatigue [Not Recovered/Not Resolved]
